FAERS Safety Report 6823747-6 (Version None)
Quarter: 2010Q3

REPORT INFORMATION
  Report Type: 
  Country: None (occurrence: None)
  Receive Date: 20100708
  Receipt Date: 20060927
  Transmission Date: 20110219
  Serious: Yes (Disabling, Other)
  Sender: FDA-Public Use
  Company Number: US-PFIZER INC-2006104937

PATIENT
  Sex: Female
  Weight: 79.38 kg

DRUGS (10)
  1. XANAX [Suspect]
     Indication: PANIC DISORDER
  2. CHANTIX [Suspect]
     Indication: SMOKING CESSATION THERAPY
     Route: 048
     Dates: start: 20060813
  3. SUDAFED 12 HOUR [Suspect]
  4. SUMATRIPTAN SUCCINATE [Suspect]
     Indication: MIGRAINE
  5. EFFEXOR [Suspect]
     Indication: BIPOLAR DISORDER
  6. CLARITIN [Concomitant]
     Route: 048
  7. ORAL CONTRACEPTIVE NOS [Concomitant]
     Route: 048
  8. TYLENOL W/ CODEINE [Concomitant]
     Route: 048
  9. PROMETHAZINE [Concomitant]
     Route: 048
  10. TYLENOL [Concomitant]
     Route: 048

REACTIONS (19)
  - ABDOMINAL DISCOMFORT [None]
  - ABDOMINAL PAIN UPPER [None]
  - BACK PAIN [None]
  - BIPOLAR DISORDER [None]
  - CHEST PAIN [None]
  - CHILLS [None]
  - FEELING ABNORMAL [None]
  - HOT FLUSH [None]
  - HYPERHIDROSIS [None]
  - HYPERSENSITIVITY [None]
  - MENTAL DISORDER [None]
  - MIGRAINE [None]
  - NAUSEA [None]
  - NERVOUSNESS [None]
  - OVERWEIGHT [None]
  - PALPITATIONS [None]
  - PANIC DISORDER [None]
  - POOR QUALITY SLEEP [None]
  - TOBACCO USER [None]
